FAERS Safety Report 9397192 (Version 1)
Quarter: 2013Q3

REPORT INFORMATION
  Report Type: Report from Study
  Country: US (occurrence: US)
  Receive Date: 20130712
  Receipt Date: 20130712
  Transmission Date: 20140515
  Serious: Yes (Hospitalization, Other)
  Sender: FDA-Public Use
  Company Number: PHEH2013US008650

PATIENT
  Sex: Male
  Weight: 49 kg

DRUGS (3)
  1. TOBI [Suspect]
     Indication: BRONCHIECTASIS
     Dosage: 300 MG, BID (CIRCLE ON 28 DAYS, OFF 28 DAYS)
     Dates: start: 20130103, end: 20130329
  2. TOBI [Suspect]
     Dosage: 300 MG, BID
  3. CAYSTON [Suspect]
     Dosage: 1 DF, TID (FOR 28 DAYS, ALTERNATE WITH TOBI OFF)
     Dates: start: 20130429

REACTIONS (17)
  - Bronchitis [Recovering/Resolving]
  - Sputum increased [Recovering/Resolving]
  - Increased viscosity of bronchial secretion [Recovering/Resolving]
  - Sputum discoloured [Recovering/Resolving]
  - Fatigue [Recovering/Resolving]
  - Productive cough [Recovering/Resolving]
  - Chest pain [Recovering/Resolving]
  - Pyrexia [Recovering/Resolving]
  - Pain [Recovering/Resolving]
  - Rales [Recovering/Resolving]
  - Wheezing [Recovering/Resolving]
  - Sputum culture positive [Recovering/Resolving]
  - Bronchiectasis [Recovering/Resolving]
  - Pulmonary fibrosis [Recovering/Resolving]
  - Primary ciliary dyskinesia [Recovering/Resolving]
  - Pulmonary function test decreased [Unknown]
  - Weight increased [Unknown]
